FAERS Safety Report 7044093-4 (Version None)
Quarter: 2010Q4

REPORT INFORMATION
  Report Type: 
  Country: None (occurrence: None)
  Receive Date: 20101013
  Receipt Date: 20101007
  Transmission Date: 20110411
  Serious: Yes (Other)
  Sender: FDA-Public Use
  Company Number: JP-PFIZER INC-2010127124

PATIENT
  Age: 85 Year
  Sex: Male

DRUGS (1)
  1. DETRUSITOL [Suspect]
     Dosage: 2MG PER DAY
     Route: 048
     Dates: start: 20091001

REACTIONS (1)
  - GAMMA-GLUTAMYLTRANSFERASE INCREASED [None]
